FAERS Safety Report 20884773 (Version 1)
Quarter: 2022Q2

REPORT INFORMATION
  Report Type: Spontaneous
  Country: US (occurrence: US)
  Receive Date: 20220527
  Receipt Date: 20220527
  Transmission Date: 20220720
  Serious: Yes (Other)
  Sender: FDA-Public Use
  Company Number: US-UCBSA-2022029258

PATIENT
  Age: 53 Year
  Sex: Female

DRUGS (6)
  1. LEVETIRACETAM [Suspect]
     Active Substance: LEVETIRACETAM
     Indication: Myoclonus
     Dosage: UNKNOWN DOSE
  2. LEVETIRACETAM [Suspect]
     Active Substance: LEVETIRACETAM
     Indication: Off label use
  3. CLONAZEPAM [Concomitant]
     Active Substance: CLONAZEPAM
     Indication: Myoclonus
     Dosage: UNKNOWN DOSE
  4. VALPROIC ACID [Concomitant]
     Active Substance: VALPROIC ACID
     Indication: Myoclonus
     Dosage: UNKNOWN DOSE
  5. LORAZEPAM [Concomitant]
     Active Substance: LORAZEPAM
     Indication: Myoclonus
     Dosage: UNKNOWN DOSE
  6. BACLOFEN [Concomitant]
     Active Substance: BACLOFEN
     Indication: Myoclonus
     Dosage: UNKNOWN DOSE

REACTIONS (3)
  - Depression [Recovering/Resolving]
  - Myoclonus [Recovering/Resolving]
  - Off label use [Unknown]
